FAERS Safety Report 11499952 (Version 1)
Quarter: 2015Q3

REPORT INFORMATION
  Report Type: Spontaneous
  Country: US (occurrence: None)
  Receive Date: 20150911
  Receipt Date: 20150911
  Transmission Date: 20151125
  Serious: No
  Sender: FDA-Public Use
  Company Number: None

PATIENT

DRUGS (6)
  1. VITAMIN D3 [Concomitant]
     Active Substance: CHOLECALCIFEROL
  2. CALCIUM [Concomitant]
     Active Substance: CALCIUM
  3. LEVOTHYROXIN [Concomitant]
     Active Substance: LEVOTHYROXINE
  4. FOLIC ACID. [Concomitant]
     Active Substance: FOLIC ACID
  5. RASUVO [Suspect]
     Active Substance: METHOTREXATE SODIUM
     Indication: JUVENILE IDIOPATHIC ARTHRITIS
     Dosage: 15MG?Q7DS?UNDER THE SKIN
     Route: 042
     Dates: start: 20150424
  6. OTREXUP [Concomitant]
     Active Substance: METHOTREXATE

REACTIONS (2)
  - Fatigue [None]
  - Abdominal discomfort [None]
